FAERS Safety Report 12425234 (Version 3)
Quarter: 2016Q3

REPORT INFORMATION
  Report Type: Spontaneous
  Country: US (occurrence: US)
  Receive Date: 20160601
  Receipt Date: 20160725
  Transmission Date: 20161109
  Serious: Yes (Life-Threatening, Hospitalization, Other)
  Sender: FDA-Public Use
  Company Number: US-PFIZER INC-2016280380

PATIENT
  Age: 64 Year
  Sex: Female
  Weight: 77.11 kg

DRUGS (13)
  1. CRESTOR [Concomitant]
     Active Substance: ROSUVASTATIN CALCIUM
     Dosage: 20 MG, DAILY (1 TAB BY MOUTH DAILY)
     Route: 048
  2. LYRICA [Suspect]
     Active Substance: PREGABALIN
     Indication: NEUROPATHY PERIPHERAL
     Dosage: 75 MG, 3X/DAY
     Route: 048
  3. FLUOXETINE HCL [Concomitant]
     Active Substance: FLUOXETINE HYDROCHLORIDE
     Dosage: 20 MG, 1X/DAY
     Route: 048
  4. LANTUS [Concomitant]
     Active Substance: INSULIN GLARGINE
     Indication: DIABETES MELLITUS
     Dosage: 125 UNITS INJECTION, 2X/DAY
     Route: 058
  5. LEVOTHYROXINE SODIUM. [Concomitant]
     Active Substance: LEVOTHYROXINE SODIUM
     Dosage: 200MCG AND 50MCG BY MOUTH DAILY AT BEDTIME
     Route: 048
  6. VITAMIN D [Concomitant]
     Active Substance: CHOLECALCIFEROL
     Indication: VITAMIN D DEFICIENCY
     Dosage: 50000 IU, WEEKLY (TAKE 1 CAPSULE)
     Route: 048
  7. APIDRA [Concomitant]
     Active Substance: INSULIN GLULISINE
     Dosage: UNK (100 UNIT/ML, GIVE AS BEFORE MEALS)
  8. ENALAPRIL MALEATE. [Concomitant]
     Active Substance: ENALAPRIL MALEATE
     Dosage: 5 MG, DAILY (TAKE 1 TABLET DAILY AS DIRECTED)
     Route: 048
  9. LOVAZA [Concomitant]
     Active Substance: OMEGA-3-ACID ETHYL ESTERS
     Dosage: TWO 1 G, 2X/DAY
     Route: 048
  10. GLYCERIN. [Concomitant]
     Active Substance: GLYCERIN
     Dosage: 2 GM RECTAL SUPPOSITORY; INSERT 1 SUPPOSITORY IN THE RECTUM AS AN ENEMA, AND RETAIN 15 MINUTES
     Route: 054
  11. METFORMIN HCL [Concomitant]
     Active Substance: METFORMIN HYDROCHLORIDE
     Dosage: 1000 MG,  EVERY 12 HOURS
     Route: 048
  12. EPIPEN [Concomitant]
     Active Substance: EPINEPHRINE
     Dosage: 0.3 ML, UNK
     Route: 030
  13. FLUTICASONE PROPIONATE. [Concomitant]
     Active Substance: FLUTICASONE PROPIONATE
     Dosage: 4 DF, 1X/DAY  (2 SPRAYS IN EACH NOSTRIL)
     Route: 045

REACTIONS (9)
  - Cardiac failure congestive [Recovering/Resolving]
  - Ischaemia [Recovered/Resolved]
  - Hypoaesthesia [Unknown]
  - Haematemesis [Recovered/Resolved]
  - Pallor [Recovered/Resolved]
  - Fall [Unknown]
  - Gastrointestinal haemorrhage [Recovered/Resolved]
  - Pulse abnormal [Unknown]
  - Diarrhoea haemorrhagic [Unknown]

NARRATIVE: CASE EVENT DATE: 20160504
